FAERS Safety Report 9499540 (Version 1)
Quarter: 2013Q3

REPORT INFORMATION
  Report Type: Report from Study
  Country: US (occurrence: US)
  Receive Date: 20130905
  Receipt Date: 20130905
  Transmission Date: 20140515
  Serious: Yes (Other)
  Sender: FDA-Public Use
  Company Number: US-BRISTOL-MYERS SQUIBB COMPANY-19234426

PATIENT
  Age: 35 Year
  Sex: Male
  Weight: 87.9 kg

DRUGS (1)
  1. IPILIMUMAB [Suspect]
     Indication: MALIGNANT MELANOMA
     Dosage: TOTAL DOSE:879MG?LAST DOSE:09AUG13
     Route: 042
     Dates: start: 20130809

REACTIONS (1)
  - Vomiting [Recovered/Resolved]
